FAERS Safety Report 8768079 (Version 1)
Quarter: 2012Q4

REPORT INFORMATION
  Report Type: 
  Country: DE (occurrence: DE)
  Receive Date: 20120905
  Receipt Date: 20120905
  Transmission Date: 20130627
  Serious: Yes (Other)
  Sender: FDA-Public Use
  Company Number: PHHY2012DE076516

PATIENT
  Sex: Female

DRUGS (4)
  1. MYFORTIC [Suspect]
     Indication: PROPHYLAXIS AGAINST TRANSPLANT REJECTION
     Dosage: 180 mg, BID
     Route: 048
     Dates: start: 2006
  2. MYFORTIC [Suspect]
     Dosage: 540 mg, BID
     Route: 048
     Dates: start: 201110
  3. CICLOSPORIN [Concomitant]
     Indication: PROPHYLAXIS AGAINST TRANSPLANT REJECTION
     Route: 048
     Dates: end: 201110
  4. TACROLIMUS [Concomitant]
     Dates: start: 201110

REACTIONS (2)
  - Renal graft loss [Unknown]
  - Renal impairment [Recovered/Resolved]
